FAERS Safety Report 9845458 (Version 1)
Quarter: 2013Q4

REPORT INFORMATION
  Report Type: Spontaneous
  Country: US (occurrence: None)
  Receive Date: 20131219
  Receipt Date: 20131219
  Transmission Date: 20140711
  Serious: Yes (Other)
  Sender: FDA-Public Use
  Company Number: 163-20785-13090520

PATIENT
  Age: 61 Year
  Sex: Male

DRUGS (8)
  1. THALOMID [Suspect]
     Indication: PLASMA CELL MYELOMA
     Dosage: 07/2011 - PERMANENTLY DISCONTINUED
     Route: 048
     Dates: start: 201107
  2. COUMADIN (WARFARIN SODIUM) [Concomitant]
  3. TOBRAMYCIN/DEXAMETHASONE (TOBRADEX) [Concomitant]
  4. LORATADINE (LORATADINE) (LORATADINE) [Concomitant]
  5. ACYCLOVIR (ACICLOVIR) (ACICLOVIR) [Concomitant]
  6. LISINOPRIL (LISINOPRIL) [Concomitant]
  7. METOPROLOL TARTRAE (METOPOLOL TARTRATE) [Concomitant]
  8. METHYLPREDNISOLONE (METHYLPREDNISOLONE) [Concomitant]

REACTIONS (1)
  - Deep vein thrombosis [None]
